FAERS Safety Report 8315973 (Version 2)
Quarter: 2013Q2

REPORT INFORMATION
  Report Type: Report from Study
  Country: AR (occurrence: AR)
  Receive Date: 20111229
  Receipt Date: 20130610
  Transmission Date: 20140414
  Serious: Yes (Other)
  Sender: FDA-Public Use
  Company Number: PHHY2011AR112219

PATIENT
  Age: 81 Year
  Sex: Female

DRUGS (1)
  1. DIOVAN [Suspect]
     Indication: HYPERTENSION
     Dosage: 1 DF(160MG), DAILY
     Route: 048

REACTIONS (6)
  - Osteoporosis [Recovered/Resolved]
  - Exostosis [Recovered/Resolved]
  - Spinal deformity [Recovered/Resolved]
  - Cataract [Recovered/Resolved]
  - Arthralgia [Not Recovered/Not Resolved]
  - Back pain [Not Recovered/Not Resolved]
